FAERS Safety Report 9918989 (Version 1)
Quarter: 2014Q1

REPORT INFORMATION
  Report Type: Spontaneous
  Country: US (occurrence: US)
  Receive Date: 20140224
  Receipt Date: 20140224
  Transmission Date: 20141002
  Serious: No
  Sender: FDA-Public Use
  Company Number: US-BRISTOL-MYERS SQUIBB COMPANY-17387804

PATIENT
  Age: 62 Year
  Sex: Female

DRUGS (3)
  1. GLUCOPHAGE [Suspect]
     Dates: start: 20111208
  2. XALATAN [Concomitant]
     Dosage: FORMULATION:OPTHALMIC SOLUTION
     Route: 048
  3. TENORMINE [Concomitant]
     Dosage: 1DF:50MG TAB
     Route: 048
     Dates: start: 20130103

REACTIONS (1)
  - Hypersensitivity [Not Recovered/Not Resolved]
